FAERS Safety Report 19211168 (Version 1)
Quarter: 2021Q2

REPORT INFORMATION
  Report Type: Spontaneous
  Country: US (occurrence: US)
  Receive Date: 20210504
  Receipt Date: 20210504
  Transmission Date: 20210717
  Serious: No
  Sender: FDA-Public Use
  Company Number: US-DRREDDYS-USA/USA/21/0135058

PATIENT
  Age: 38 Year
  Sex: Female

DRUGS (2)
  1. ZENATANE [Suspect]
     Active Substance: ISOTRETINOIN
     Indication: PRODUCT USED FOR UNKNOWN INDICATION
     Dosage: RMA ISSUE DATE:1/16/2021 2:57:10 PM
     Route: 048
  2. ZENATANE [Suspect]
     Active Substance: ISOTRETINOIN
     Dosage: RMA ISSUE DATE :12/3/2020 9:12:49 AM,2/22/2021 6:13:59 PM AND 4/3/2021 2:15:41 PM
     Route: 048

REACTIONS (2)
  - Adverse drug reaction [Unknown]
  - Drug intolerance [Unknown]
